FAERS Safety Report 8113804-9 (Version None)
Quarter: 2012Q1

REPORT INFORMATION
  Report Type: 
  Country: None (occurrence: None)
  Receive Date: 20120203
  Receipt Date: 20120201
  Transmission Date: 20120608
  Serious: Yes (Death, Hospitalization)
  Sender: FDA-Public Use
  Company Number: PL-UCBSA-046072

PATIENT
  Age: 66 Year
  Sex: Female
  Weight: 91.6 kg

DRUGS (9)
  1. POLPRAZOL [Concomitant]
     Indication: GASTRIC ULCER
     Route: 048
     Dates: start: 20100329, end: 20120101
  2. ACIDUM FOLICUM [Concomitant]
     Indication: UNEVALUABLE EVENT
     Dosage: 5 MG QS
     Route: 048
     Dates: start: 20061002, end: 20120101
  3. LEVOTHYROXINE SODIUM [Concomitant]
     Indication: HYPOTHYROIDISM
     Route: 048
     Dates: start: 20000501, end: 20120101
  4. METHOTREXATE [Concomitant]
     Indication: PSORIATIC ARTHROPATHY
     Dosage: 15 MG QS
     Route: 048
     Dates: start: 20100621, end: 20120101
  5. DICLOFENAC [Concomitant]
     Indication: PSORIATIC ARTHROPATHY
     Route: 048
     Dates: start: 20100329, end: 20120101
  6. CIMZIA [Suspect]
     Route: 058
     Dates: start: 20101207, end: 20110524
  7. CIMZIA [Suspect]
     Indication: PSORIATIC ARTHROPATHY
     Route: 058
     Dates: start: 20110524, end: 20111117
  8. POLPRIL [Concomitant]
     Indication: HYPERTENSION
     Route: 048
     Dates: start: 20080801, end: 20120101
  9. BISOPROLOL FUMARATE [Concomitant]
     Indication: HYPERTENSION
     Route: 048
     Dates: start: 20100329, end: 20120101

REACTIONS (3)
  - BACK PAIN [None]
  - BREAST CANCER [None]
  - DYSPNOEA [None]
